FAERS Safety Report 8741396 (Version 2)
Quarter: 2013Q2

REPORT INFORMATION
  Report Type: Spontaneous
  Country: US (occurrence: US)
  Receive Date: 20120824
  Receipt Date: 20130507
  Transmission Date: 20140414
  Serious: No
  Sender: FDA-Public Use
  Company Number: US-ASTRAZENECA-2012SE16580

PATIENT
  Age: 69 Year
  Sex: Female
  Weight: 39.5 kg

DRUGS (5)
  1. SYMBICORT PMDI [Suspect]
     Indication: CHRONIC OBSTRUCTIVE PULMONARY DISEASE
     Dosage: 2 PUFFS, BID
     Route: 055
     Dates: start: 20120303
  2. SYMBICORT PMDI [Suspect]
     Indication: CHRONIC OBSTRUCTIVE PULMONARY DISEASE
     Dosage: 160/4.5, TWO PUFFS, BID
     Route: 055
     Dates: start: 201112
  3. OSTEOPOROSIS DRUGS [Concomitant]
  4. FORTICAL NASAL SPRAY [Concomitant]
     Indication: OSTEOPOROSIS
     Route: 045
  5. FORTICAL NASAL SPRAY [Concomitant]
     Indication: OSTEOPOROSIS
     Dosage: ONE SPRAY PER DAY TO ONE NOSTRIL PER DAY ALTERNATING NOSTRILS EVERY OTHER DAY
     Route: 045

REACTIONS (8)
  - Dyspnoea [Unknown]
  - Pollakiuria [Unknown]
  - Thirst [Unknown]
  - Abdominal discomfort [Unknown]
  - Skin disorder [Unknown]
  - Dizziness [Unknown]
  - Nervousness [Unknown]
  - Heart rate increased [Unknown]
